FAERS Safety Report 7157945-1 (Version None)
Quarter: 2010Q4

REPORT INFORMATION
  Report Type: 
  Country: None (occurrence: None)
  Receive Date: 20101214
  Receipt Date: 20101130
  Transmission Date: 20110411
  Serious: Yes (Death)
  Sender: FDA-Public Use
  Company Number: US-JNJFOC-20101202727

PATIENT
  Age: 20 Year
  Sex: Female

DRUGS (9)
  1. INFLIXIMAB, RECOMBINANT [Suspect]
     Indication: CHRONIC GRANULOMATOUS DISEASE
     Dosage: GIVEN EVERY 6-8 WEEKS, RECEIVED 12 INFUSIONS
     Route: 042
  2. INFLIXIMAB, RECOMBINANT [Suspect]
     Route: 042
  3. INTERFERON GAMMA [Concomitant]
  4. MERCAPTOPURINE [Concomitant]
     Indication: CHRONIC GRANULOMATOUS DISEASE
  5. PREDNISONE [Concomitant]
     Indication: CHRONIC GRANULOMATOUS DISEASE
  6. MESALAMINE [Concomitant]
     Indication: CHRONIC GRANULOMATOUS DISEASE
  7. TRIMETHOPRIM + SULFAMETHOXAZOLE [Concomitant]
     Indication: ANTIBIOTIC PROPHYLAXIS
  8. ITRACONAZOLE [Concomitant]
     Indication: ANTIBIOTIC PROPHYLAXIS
  9. METRONIDAZOLE [Concomitant]
     Indication: ANTIBIOTIC PROPHYLAXIS

REACTIONS (5)
  - BACTERIAL SEPSIS [None]
  - CANDIDA SEPSIS [None]
  - FUNGAL SEPSIS [None]
  - MULTI-ORGAN FAILURE [None]
  - STAPHYLOCOCCAL SEPSIS [None]
